FAERS Safety Report 17147915 (Version 1)
Quarter: 2019Q4

REPORT INFORMATION
  Report Type: Spontaneous
  Country: US (occurrence: US)
  Receive Date: 20191212
  Receipt Date: 20191212
  Transmission Date: 20200122
  Serious: Yes (Hospitalization)
  Sender: FDA-Public Use
  Company Number: US-JNJFOC-20191214388

PATIENT
  Age: 69 Year
  Sex: Male

DRUGS (1)
  1. INVOKANA [Suspect]
     Active Substance: CANAGLIFLOZIN
     Indication: DIABETES MELLITUS INADEQUATE CONTROL
     Route: 048

REACTIONS (5)
  - Diabetic foot [Unknown]
  - Postoperative wound complication [Unknown]
  - Osteomyelitis [Unknown]
  - Limb amputation [Unknown]
  - Dry gangrene [Unknown]

NARRATIVE: CASE EVENT DATE: 20160420
